FAERS Safety Report 25496035 (Version 1)
Quarter: 2025Q2

REPORT INFORMATION
  Report Type: Spontaneous
  Country: GB (occurrence: GB)
  Receive Date: 20250630
  Receipt Date: 20250630
  Transmission Date: 20250716
  Serious: Yes (Other)
  Sender: MYLAN
  Company Number: GB-MHRA-TPP35898559C9963298YC1750670844141

PATIENT
  Age: 50 Year
  Sex: Male
  Weight: 108 kg

DRUGS (28)
  1. CELECOXIB [Suspect]
     Active Substance: CELECOXIB
     Indication: Ill-defined disorder
  2. CELECOXIB [Suspect]
     Active Substance: CELECOXIB
     Route: 065
  3. CELECOXIB [Suspect]
     Active Substance: CELECOXIB
     Route: 065
  4. CELECOXIB [Suspect]
     Active Substance: CELECOXIB
  5. DICLOFENAC SODIUM [Concomitant]
     Active Substance: DICLOFENAC SODIUM
     Indication: Ill-defined disorder
     Dosage: 100 MILLIGRAM, QD (ONCE DAILY) PR (BY RECTUM)
     Dates: start: 20241213
  6. DICLOFENAC SODIUM [Concomitant]
     Active Substance: DICLOFENAC SODIUM
     Dosage: 100 MILLIGRAM, QD (ONCE DAILY) PR (BY RECTUM)
     Route: 054
     Dates: start: 20241213
  7. DICLOFENAC SODIUM [Concomitant]
     Active Substance: DICLOFENAC SODIUM
     Dosage: 100 MILLIGRAM, QD (ONCE DAILY) PR (BY RECTUM)
     Route: 054
     Dates: start: 20241213
  8. DICLOFENAC SODIUM [Concomitant]
     Active Substance: DICLOFENAC SODIUM
     Dosage: 100 MILLIGRAM, QD (ONCE DAILY) PR (BY RECTUM)
     Dates: start: 20241213
  9. AMITRIPTYLINE HYDROCHLORIDE [Concomitant]
     Active Substance: AMITRIPTYLINE HYDROCHLORIDE
     Indication: Ill-defined disorder
     Dosage: 1 DOSAGE FORM, PM (TAKE ONE TABLET AT NIGHT)
     Dates: start: 20241213
  10. AMITRIPTYLINE HYDROCHLORIDE [Concomitant]
     Active Substance: AMITRIPTYLINE HYDROCHLORIDE
     Dosage: 1 DOSAGE FORM, PM (TAKE ONE TABLET AT NIGHT)
     Route: 065
     Dates: start: 20241213
  11. AMITRIPTYLINE HYDROCHLORIDE [Concomitant]
     Active Substance: AMITRIPTYLINE HYDROCHLORIDE
     Dosage: 1 DOSAGE FORM, PM (TAKE ONE TABLET AT NIGHT)
     Route: 065
     Dates: start: 20241213
  12. AMITRIPTYLINE HYDROCHLORIDE [Concomitant]
     Active Substance: AMITRIPTYLINE HYDROCHLORIDE
     Dosage: 1 DOSAGE FORM, PM (TAKE ONE TABLET AT NIGHT)
     Dates: start: 20241213
  13. BECLOMETHASONE\FORMOTEROL [Concomitant]
     Active Substance: BECLOMETHASONE\FORMOTEROL
     Indication: Ill-defined disorder
     Dosage: 2 DOSAGE FORM, BID (INHALE TWO DOSES TWICE DAILY (INHALE QUICKLY AN..)
     Dates: start: 20241213
  14. BECLOMETHASONE\FORMOTEROL [Concomitant]
     Active Substance: BECLOMETHASONE\FORMOTEROL
     Dosage: 2 DOSAGE FORM, BID (INHALE TWO DOSES TWICE DAILY (INHALE QUICKLY AN..)
     Route: 055
     Dates: start: 20241213
  15. BECLOMETHASONE\FORMOTEROL [Concomitant]
     Active Substance: BECLOMETHASONE\FORMOTEROL
     Dosage: 2 DOSAGE FORM, BID (INHALE TWO DOSES TWICE DAILY (INHALE QUICKLY AN..)
     Route: 055
     Dates: start: 20241213
  16. BECLOMETHASONE\FORMOTEROL [Concomitant]
     Active Substance: BECLOMETHASONE\FORMOTEROL
     Dosage: 2 DOSAGE FORM, BID (INHALE TWO DOSES TWICE DAILY (INHALE QUICKLY AN..)
     Dates: start: 20241213
  17. LANSOPRAZOLE [Concomitant]
     Active Substance: LANSOPRAZOLE
     Indication: Ill-defined disorder
     Dosage: 1 DOSAGE FORM, QD (TAKE ONE ONCE DAILY WHILST ON DICLOFENAC)
     Dates: start: 20241213
  18. LANSOPRAZOLE [Concomitant]
     Active Substance: LANSOPRAZOLE
     Dosage: 1 DOSAGE FORM, QD (TAKE ONE ONCE DAILY WHILST ON DICLOFENAC)
     Route: 065
     Dates: start: 20241213
  19. LANSOPRAZOLE [Concomitant]
     Active Substance: LANSOPRAZOLE
     Dosage: 1 DOSAGE FORM, QD (TAKE ONE ONCE DAILY WHILST ON DICLOFENAC)
     Route: 065
     Dates: start: 20241213
  20. LANSOPRAZOLE [Concomitant]
     Active Substance: LANSOPRAZOLE
     Dosage: 1 DOSAGE FORM, QD (TAKE ONE ONCE DAILY WHILST ON DICLOFENAC)
     Dates: start: 20241213
  21. COCODAMOL [Concomitant]
     Active Substance: ACETAMINOPHEN\CODEINE PHOSPHATE
     Indication: Ill-defined disorder
     Dosage: UNK UNK, QID (1-2 TABLETS PO BY MOUTH QDS FOUR TIMES A DAY..)
     Dates: start: 20250611
  22. COCODAMOL [Concomitant]
     Active Substance: ACETAMINOPHEN\CODEINE PHOSPHATE
     Dosage: UNK UNK, QID (1-2 TABLETS PO BY MOUTH QDS FOUR TIMES A DAY..)
     Route: 048
     Dates: start: 20250611
  23. COCODAMOL [Concomitant]
     Active Substance: ACETAMINOPHEN\CODEINE PHOSPHATE
     Dosage: UNK UNK, QID (1-2 TABLETS PO BY MOUTH QDS FOUR TIMES A DAY..)
     Route: 048
     Dates: start: 20250611
  24. COCODAMOL [Concomitant]
     Active Substance: ACETAMINOPHEN\CODEINE PHOSPHATE
     Dosage: UNK UNK, QID (1-2 TABLETS PO BY MOUTH QDS FOUR TIMES A DAY..)
     Dates: start: 20250611
  25. POLYETHYLENE GLYCOL 3350\POTASSIUM CHLORIDE\SODIUM BICARBONATE\SODIUM [Concomitant]
     Active Substance: POLYETHYLENE GLYCOL 3350\POTASSIUM CHLORIDE\SODIUM BICARBONATE\SODIUM CHLORIDE
     Indication: Ill-defined disorder
     Dosage: UNK UNK, QD (1-2 SACHETS OD (ONCE DAILY) PO (BY MOUTH))
     Dates: start: 20250611
  26. POLYETHYLENE GLYCOL 3350\POTASSIUM CHLORIDE\SODIUM BICARBONATE\SODIUM [Concomitant]
     Active Substance: POLYETHYLENE GLYCOL 3350\POTASSIUM CHLORIDE\SODIUM BICARBONATE\SODIUM CHLORIDE
     Dosage: UNK UNK, QD (1-2 SACHETS OD (ONCE DAILY) PO (BY MOUTH))
     Route: 048
     Dates: start: 20250611
  27. POLYETHYLENE GLYCOL 3350\POTASSIUM CHLORIDE\SODIUM BICARBONATE\SODIUM [Concomitant]
     Active Substance: POLYETHYLENE GLYCOL 3350\POTASSIUM CHLORIDE\SODIUM BICARBONATE\SODIUM CHLORIDE
     Dosage: UNK UNK, QD (1-2 SACHETS OD (ONCE DAILY) PO (BY MOUTH))
     Route: 048
     Dates: start: 20250611
  28. POLYETHYLENE GLYCOL 3350\POTASSIUM CHLORIDE\SODIUM BICARBONATE\SODIUM [Concomitant]
     Active Substance: POLYETHYLENE GLYCOL 3350\POTASSIUM CHLORIDE\SODIUM BICARBONATE\SODIUM CHLORIDE
     Dosage: UNK UNK, QD (1-2 SACHETS OD (ONCE DAILY) PO (BY MOUTH))
     Dates: start: 20250611

REACTIONS (2)
  - Swollen tongue [Unknown]
  - Drooling [Unknown]
